FAERS Safety Report 10483980 (Version 1)
Quarter: 2014Q3

REPORT INFORMATION
  Report Type: Spontaneous
  Country: CA (occurrence: CA)
  Receive Date: 20140930
  Receipt Date: 20140930
  Transmission Date: 20150326
  Serious: Yes (Disabling)
  Sender: FDA-Public Use
  Company Number: CA-PFIZER INC-2014264906

PATIENT
  Age: 73 Year
  Sex: Female
  Weight: 116.1 kg

DRUGS (1)
  1. PREGABALIN. [Suspect]
     Active Substance: PREGABALIN
     Dosage: 150 MG, 2X/DAY
     Route: 048

REACTIONS (4)
  - Discomfort [Unknown]
  - Drug ineffective [Unknown]
  - Sleep disorder [Unknown]
  - Product substitution issue [Unknown]
